FAERS Safety Report 24915248 (Version 1)
Quarter: 2025Q1

REPORT INFORMATION
  Report Type: Spontaneous
  Country: AU (occurrence: AU)
  Receive Date: 20250203
  Receipt Date: 20250203
  Transmission Date: 20250409
  Serious: Yes (Other)
  Sender: ALKEM
  Company Number: AU-ALKEM LABORATORIES LIMITED-AU-ALKEM-2025-00892

PATIENT
  Sex: Female

DRUGS (2)
  1. METFORMIN HYDROCHLORIDE [Suspect]
     Active Substance: METFORMIN HYDROCHLORIDE
     Indication: Product used for unknown indication
     Route: 065
  2. INSULIN HUMAN [Suspect]
     Active Substance: INSULIN HUMAN
     Indication: Product used for unknown indication
     Route: 065

REACTIONS (9)
  - Diabetes mellitus inadequate control [Unknown]
  - Fall [Unknown]
  - Gluten sensitivity [Unknown]
  - Joint arthroplasty [Unknown]
  - Lactose intolerance [Unknown]
  - Lower limb fracture [Unknown]
  - Nosocomial infection [Unknown]
  - Osteoporosis [Unknown]
  - Blood glucose decreased [Unknown]
